FAERS Safety Report 4547541-4 (Version None)
Quarter: 2004Q4

REPORT INFORMATION
  Report Type: 
  Country: None (occurrence: None)
  Receive Date: 20041227
  Receipt Date: 20040922
  Transmission Date: 20050328
  Serious: No
  Sender: FDA-Public Use
  Company Number: 04P-163-0274261-00

PATIENT
  Age: 57 Year
  Sex: Female
  Weight: 115 kg

DRUGS (14)
  1. HUMIRA [Suspect]
     Indication: RHEUMATOID ARTHRITIS
     Dosage: 40 MG, 1 IN 2 WK, SUBCUTANEOUS
     Route: 058
     Dates: start: 20040810
  2. CELECOXIB [Concomitant]
  3. SULFASALAZINE [Concomitant]
  4. METHOTREXATE [Concomitant]
  5. OXAZEPAM [Concomitant]
  6. FOLIC ACID [Concomitant]
  7. HYDROCODONE [Concomitant]
  8. LEVOTHYROXINE SODIUM [Concomitant]
  9. CETIRIZINE HCL [Concomitant]
  10. QUINAPRIL HYDROCHLORIDE [Concomitant]
  11. BISOPROLOL FUMARATE AND HYDROCHLOROTHIAZIDE [Concomitant]
  12. DETROL LA [Concomitant]
  13. FLUOXETINE [Concomitant]
  14. RABEPRAZOLE SODIUM [Concomitant]

REACTIONS (1)
  - INJECTION SITE BURNING [None]
